FAERS Safety Report 5327995-6 (Version None)
Quarter: 2007Q2

REPORT INFORMATION
  Report Type: 
  Country: None (occurrence: None)
  Receive Date: 20070517
  Receipt Date: 20070502
  Transmission Date: 20071010
  Serious: Yes (Hospitalization, Other)
  Sender: FDA-Public Use
  Company Number: US-SHR-US-2007-014451

PATIENT
  Age: 60 Year
  Sex: Female
  Weight: 79.365 kg

DRUGS (7)
  1. BETASERON [Suspect]
     Indication: RELAPSING-REMITTING MULTIPLE SCLEROSIS
     Dosage: 8 MIU, EVERY 2D
     Route: 058
     Dates: start: 19930101
  2. ZESTORETIC [Concomitant]
  3. ATENOLOL [Concomitant]
  4. VYTORIN [Concomitant]
  5. ASPIRIN [Concomitant]
  6. LISINOPRIL [Concomitant]
  7. HYDROCHLOROTHIAZIDE [Concomitant]

REACTIONS (7)
  - CATARACT OPERATION [None]
  - CORONARY ARTERY OCCLUSION [None]
  - DYSPEPSIA [None]
  - INFLUENZA LIKE ILLNESS [None]
  - INJECTION SITE MASS [None]
  - RASH [None]
  - URTICARIA [None]
